FAERS Safety Report 6347465-6 (Version None)
Quarter: 2009Q3

REPORT INFORMATION
  Report Type: 
  Country: None (occurrence: None)
  Receive Date: 20090910
  Receipt Date: 20090813
  Transmission Date: 20100115
  Serious: No
  Sender: FDA-Public Use
  Company Number: US-BAYER-200913407BCC

PATIENT
  Age: 41 Year
  Sex: Female
  Weight: 104 kg

DRUGS (2)
  1. ALEVE [Suspect]
     Indication: TOOTHACHE
     Route: 048
     Dates: start: 20090812
  2. MOTRIN [Concomitant]
     Route: 065

REACTIONS (2)
  - EYE DISORDER [None]
  - SWELLING FACE [None]
